APPROVED DRUG PRODUCT: ZIMHI
Active Ingredient: NALOXONE HYDROCHLORIDE
Strength: 5MG/0.5ML (5MG/0.5ML)
Dosage Form/Route: SOLUTION;INTRAMUSCULAR, SUBCUTANEOUS
Application: N212854 | Product #001
Applicant: ZMI PHARMA INC
Approved: Oct 15, 2021 | RLD: Yes | RS: Yes | Type: RX

PATENTS:
Patent 11571518 | Expires: Jun 14, 2041
Patent 11571518 | Expires: Jun 14, 2041
Patent 11571518 | Expires: Jun 14, 2041
Patent 11027072 | Expires: May 24, 2039